FAERS Safety Report 4433166-8 (Version None)
Quarter: 2004Q3

REPORT INFORMATION
  Report Type: 
  Country: None (occurrence: None)
  Receive Date: 20040823
  Receipt Date: 20040809
  Transmission Date: 20050211
  Serious: Yes (Life-Threatening, Hospitalization, Other)
  Sender: FDA-Public Use
  Company Number: 2004046521

PATIENT
  Age: 65 Year
  Sex: Male

DRUGS (9)
  1. NEURONTIN [Suspect]
     Indication: AFFECTIVE DISORDER
     Dosage: 1900 MG (2 IN 1 D), ORAL
     Route: 048
     Dates: start: 20001127, end: 20040802
  2. NEURONTIN [Suspect]
     Indication: ANXIETY
     Dosage: 1900 MG (2 IN 1 D), ORAL
     Route: 048
     Dates: start: 20001127, end: 20040802
  3. NEURONTIN [Suspect]
     Indication: BIPOLAR DISORDER
     Dosage: 1900 MG (2 IN 1 D), ORAL
     Route: 048
     Dates: start: 20001127, end: 20040802
  4. ZOLPIDEM TARTRATE [Concomitant]
  5. METFORMIN HCL [Concomitant]
  6. ATORVASTATIN (ATORVASTATIN) [Concomitant]
  7. QUINAPRIL HCL [Concomitant]
  8. PAROXETINE HCL [Concomitant]
  9. QUETIAPINE FUMARATE (QUETIAPINE FUMARATE) [Concomitant]

REACTIONS (3)
  - DYSPNOEA [None]
  - PERICARDIAL EFFUSION [None]
  - PERICARDITIS [None]
